FAERS Safety Report 22269922 (Version 1)
Quarter: 2023Q2

REPORT INFORMATION
  Report Type: Spontaneous
  Country: US (occurrence: US)
  Receive Date: 20230501
  Receipt Date: 20230501
  Transmission Date: 20230722
  Serious: No
  Sender: FDA-Public Use
  Company Number: US-PFIZER INC-202300168773

PATIENT
  Age: 81 Year
  Sex: Male
  Weight: 106.59 kg

DRUGS (1)
  1. MILRINONE [Suspect]
     Active Substance: MILRINONE
     Dosage: UNK

REACTIONS (1)
  - Nausea [Unknown]
